FAERS Safety Report 16332060 (Version 1)
Quarter: 2019Q2

REPORT INFORMATION
  Report Type: Spontaneous
  Country: US (occurrence: US)
  Receive Date: 20190518
  Receipt Date: 20190518
  Transmission Date: 20190711
  Serious: Yes (Other)
  Sender: FDA-Public Use
  Company Number: None

PATIENT
  Age: 36 Year
  Sex: Female
  Weight: 47.7 kg

DRUGS (4)
  1. BENIDRYL [Concomitant]
  2. BUPRENORPHINE AND NALOXONE SUBLINGUAL FILM 8MG/2MG [Suspect]
     Active Substance: BUPRENORPHINE\NALOXONE
     Indication: DRUG USE DISORDER
     Dosage: ?          QUANTITY:2 ONCE A DAY;?
     Route: 060
     Dates: start: 20190515, end: 20190518
  3. VITAMIN [Concomitant]
     Active Substance: VITAMINS
  4. CALCIUM MAGNESIUM [Concomitant]
     Active Substance: CALCIUM\MAGNESIUM

REACTIONS (2)
  - Drug dependence [None]
  - Product substitution issue [None]

NARRATIVE: CASE EVENT DATE: 20190515
